FAERS Safety Report 20822794 (Version 1)
Quarter: 2022Q2

REPORT INFORMATION
  Report Type: Spontaneous
  Country: US (occurrence: US)
  Receive Date: 20220512
  Receipt Date: 20220512
  Transmission Date: 20220721
  Serious: No
  Sender: FDA-Public Use
  Company Number: US-PFIZER INC-202200689604

PATIENT
  Age: 71 Year
  Sex: Female
  Weight: 63.5 kg

DRUGS (4)
  1. QUINAPRIL [Suspect]
     Active Substance: QUINAPRIL
     Indication: Blood pressure abnormal
     Dosage: 10 MG
     Dates: start: 20220426
  2. FLOVENT [Concomitant]
     Active Substance: FLUTICASONE PROPIONATE
     Indication: Chronic obstructive pulmonary disease
     Dosage: 220 UG, 1 PUMP, 1X/DAY
  3. ALBUTEROL SULFATE [Concomitant]
     Active Substance: ALBUTEROL SULFATE
     Indication: Wheezing
  4. ALBUTEROL SULFATE [Concomitant]
     Active Substance: ALBUTEROL SULFATE
     Indication: Dyspnoea

REACTIONS (1)
  - Drug ineffective [Unknown]
